FAERS Safety Report 16191804 (Version 2)
Quarter: 2019Q2

REPORT INFORMATION
  Report Type: Spontaneous
  Country: DE (occurrence: DE)
  Receive Date: 20190412
  Receipt Date: 20190425
  Transmission Date: 20190711
  Serious: Yes (Hospitalization, Other)
  Sender: FDA-Public Use
  Company Number: DE-ASTRAZENECA-2019SE21118

PATIENT
  Age: 1 Year
  Sex: Male

DRUGS (4)
  1. DEKRISTOL [Concomitant]
     Active Substance: CHOLECALCIFEROL
     Indication: PRODUCT USED FOR UNKNOWN INDICATION
     Dates: start: 2019
  2. SYNAGIS [Suspect]
     Active Substance: PALIVIZUMAB
     Indication: ANTIVIRAL PROPHYLAXIS
     Dosage: MONTHLY ON (30-DEC-2018), 15 MG/KG MONTHLY ON (15-JAN-2019), MONTHLY ON (08-FEB-2019), MONTHLY O...
     Route: 030
     Dates: start: 20181230
  3. DEKRISTOL [Concomitant]
     Active Substance: CHOLECALCIFEROL
     Indication: PRODUCT USED FOR UNKNOWN INDICATION
     Dosage: DAILY
  4. SYNAGIS [Suspect]
     Active Substance: PALIVIZUMAB
     Indication: PREMATURE BABY
     Dosage: MONTHLY ON (30-DEC-2018), 15 MG/KG MONTHLY ON (15-JAN-2019), MONTHLY ON (08-FEB-2019), MONTHLY O...
     Route: 030
     Dates: start: 20181230

REACTIONS (30)
  - Respiratory failure [Unknown]
  - Hepatosplenomegaly [Recovered/Resolved]
  - Corona virus infection [Unknown]
  - Atelectasis [Recovering/Resolving]
  - Pericardial effusion [Recovered/Resolved]
  - Pneumonia haemophilus [Unknown]
  - Anaemia [Unknown]
  - Shift to the left [Unknown]
  - Pneumonia [Unknown]
  - Pneumonia escherichia [Unknown]
  - Hydrocele [Recovering/Resolving]
  - Tachycardia [Unknown]
  - Rhinitis [Unknown]
  - Respiratory syncytial virus bronchitis [Unknown]
  - General physical condition abnormal [Recovering/Resolving]
  - Cardiac failure [Unknown]
  - Tonsillar erythema [Unknown]
  - Food refusal [Unknown]
  - Haemophilus sepsis [Unknown]
  - Dermatitis diaper [Unknown]
  - Pallor [Unknown]
  - Tachypnoea [Unknown]
  - Escherichia sepsis [Unknown]
  - Hypothermia [Unknown]
  - Joint effusion [Unknown]
  - Pharyngeal erythema [Unknown]
  - Rhinovirus infection [Unknown]
  - Crying [Unknown]
  - Fluid intake reduced [Unknown]
  - Restlessness [Unknown]

NARRATIVE: CASE EVENT DATE: 2019
